FAERS Safety Report 17717786 (Version 1)
Quarter: 2020Q2

REPORT INFORMATION
  Report Type: Spontaneous
  Country: US (occurrence: US)
  Receive Date: 20200428
  Receipt Date: 20200428
  Transmission Date: 20200714
  Serious: Yes (Hospitalization)
  Sender: FDA-Public Use
  Company Number: None

PATIENT
  Age: 39 Year
  Sex: Male
  Weight: 148 kg

DRUGS (7)
  1. FILGRASTIM (G-CSF) [Suspect]
     Active Substance: FILGRASTIM
     Dates: end: 20200423
  2. IFOSFAMIDE. [Suspect]
     Active Substance: IFOSFAMIDE
     Dates: end: 20200415
  3. TAXOL [Suspect]
     Active Substance: PACLITAXEL
     Dates: end: 20200413
  4. AMLODIPINE [Concomitant]
     Active Substance: AMLODIPINE BESYLATE
  5. HYDROCHLOROTHIAZIDE. [Concomitant]
     Active Substance: HYDROCHLOROTHIAZIDE
  6. RAMIPRIL. [Concomitant]
     Active Substance: RAMIPRIL
  7. CARVEDILOL. [Concomitant]
     Active Substance: CARVEDILOL

REACTIONS (6)
  - Respiratory failure [None]
  - Haemoglobin decreased [None]
  - Capillary leak syndrome [None]
  - Hypoxia [None]
  - Pulmonary oedema [None]
  - Oxygen saturation decreased [None]

NARRATIVE: CASE EVENT DATE: 20200423
